FAERS Safety Report 23649628 (Version 1)
Quarter: 2024Q1

REPORT INFORMATION
  Report Type: Spontaneous
  Country: US (occurrence: US)
  Receive Date: 20240319
  Receipt Date: 20240319
  Transmission Date: 20240410
  Serious: No
  Sender: FDA-Public Use
  Company Number: US-PURDUE PHARMA-USA-2024-0308346

PATIENT
  Sex: Male
  Weight: 70.31 kg

DRUGS (4)
  1. HYDROMORPHONE [Suspect]
     Active Substance: HYDROMORPHONE
     Indication: Pain management
     Dosage: 8 MILLIGRAM (FOR TWO YEARS,  SOMETIME IN NOVEMBER OR EARLY DECEMBER)
     Route: 048
  2. HYDROMORPHONE [Suspect]
     Active Substance: HYDROMORPHONE
     Dosage: 4 MILLIGRAM (2 TABS IN THE MORNING; 2 TABS AT NIGHT)
     Route: 048
  3. HYDROMORPHONE [Suspect]
     Active Substance: HYDROMORPHONE
     Dosage: 2 TABLET, PRN (2 TABLETS OF THE 4 MG AT A TIME)
     Route: 048
  4. HYDROMORPHONE [Suspect]
     Active Substance: HYDROMORPHONE
     Indication: Product used for unknown indication
     Dosage: UNK
     Route: 065

REACTIONS (4)
  - Loss of personal independence in daily activities [Unknown]
  - Adverse drug reaction [Unknown]
  - Drug ineffective [Not Recovered/Not Resolved]
  - Product availability issue [Unknown]
